FAERS Safety Report 6858829-6 (Version None)
Quarter: 2010Q3

REPORT INFORMATION
  Report Type: 
  Country: None (occurrence: None)
  Receive Date: 20100719
  Receipt Date: 20080405
  Transmission Date: 20110219
  Serious: No
  Sender: FDA-Public Use
  Company Number: US-PFIZER INC-2008014420

PATIENT
  Sex: Female
  Weight: 83.5 kg

DRUGS (4)
  1. CHANTIX [Suspect]
     Indication: SMOKING CESSATION THERAPY
     Route: 048
     Dates: start: 20071225
  2. FORADIL [Suspect]
     Indication: CHRONIC OBSTRUCTIVE PULMONARY DISEASE
  3. ALL OTHER THERAPEUTIC PRODUCTS [Suspect]
  4. CICLOSPORIN [Concomitant]

REACTIONS (2)
  - DRY MOUTH [None]
  - INSOMNIA [None]
